FAERS Safety Report 8180915-1 (Version None)
Quarter: 2012Q1

REPORT INFORMATION
  Report Type: 
  Country: None (occurrence: None)
  Receive Date: 20120302
  Receipt Date: 20120222
  Transmission Date: 20120608
  Serious: Yes (Other)
  Sender: FDA-Public Use
  Company Number: JP-EISAI INC-E7389-01995-SPO-JP

PATIENT
  Age: 58 Year
  Sex: Female

DRUGS (1)
  1. HALAVEN [Suspect]
     Route: 041
     Dates: start: 20111020, end: 20111229

REACTIONS (1)
  - INTERSTITIAL LUNG DISEASE [None]
